FAERS Safety Report 14779047 (Version 1)
Quarter: 2018Q2

REPORT INFORMATION
  Report Type: Report from Study
  Country: US (occurrence: US)
  Receive Date: 20180419
  Receipt Date: 20180419
  Transmission Date: 20180711
  Serious: Yes (Hospitalization)
  Sender: FDA-Public Use
  Company Number: US-JNJFOC-20180417463

PATIENT

DRUGS (1)
  1. STELARA [Suspect]
     Active Substance: USTEKINUMAB
     Indication: PRODUCT USED FOR UNKNOWN INDICATION
     Route: 058

REACTIONS (7)
  - Delirium [Unknown]
  - Blood pressure increased [Unknown]
  - Dehydration [Unknown]
  - Pneumonia [Unknown]
  - Diarrhoea [Unknown]
  - Pleural effusion [Unknown]
  - Condition aggravated [Unknown]
